FAERS Safety Report 9454537 (Version 1)
Quarter: 2013Q3

REPORT INFORMATION
  Report Type: Spontaneous
  Country: US (occurrence: None)
  Receive Date: 20130808
  Receipt Date: 20130808
  Transmission Date: 20140515
  Serious: Yes (Other)
  Sender: FDA-Public Use
  Company Number: 2013SA078696

PATIENT
  Age: 68 Year
  Sex: 0

DRUGS (1)
  1. ICY HOT [Suspect]

REACTIONS (3)
  - Erythema [None]
  - Burning sensation [None]
  - Blister [None]
